FAERS Safety Report 19612984 (Version 1)
Quarter: 2021Q3

REPORT INFORMATION
  Report Type: Report from Study
  Country: JP (occurrence: JP)
  Receive Date: 20210727
  Receipt Date: 20210727
  Transmission Date: 20211014
  Serious: Yes (Other)
  Sender: FDA-Public Use
  Company Number: JP-TEVA-2021-JP-1935719

PATIENT
  Age: 61 Year
  Sex: Female

DRUGS (2)
  1. METHOTREXATE. [Suspect]
     Active Substance: METHOTREXATE
     Indication: SCLERITIS
     Route: 065
  2. PREDNISOLONE. [Suspect]
     Active Substance: PREDNISOLONE
     Indication: SCLERITIS
     Dosage: 25 MILLIGRAM DAILY;
     Route: 065

REACTIONS (6)
  - Hepatotoxicity [Unknown]
  - Ocular hypertension [Unknown]
  - Hypertension [Unknown]
  - Off label use [Unknown]
  - Diabetes mellitus [Unknown]
  - Hyperlipidaemia [Unknown]
